FAERS Safety Report 5835109-9 (Version None)
Quarter: 2008Q3

REPORT INFORMATION
  Report Type: 
  Country: None (occurrence: None)
  Receive Date: 20080804
  Receipt Date: 20080723
  Transmission Date: 20090109
  Serious: Yes (Other)
  Sender: FDA-Public Use
  Company Number: 2008US001946

PATIENT
  Age: 38 Year
  Sex: Male

DRUGS (6)
  1. PROGRAF [Suspect]
     Indication: RENAL FAILURE CHRONIC
     Dosage: 2 MG, UID/QD, ORAL
     Route: 048
  2. PREDNISOLONE TAB [Concomitant]
  3. FUROSEMIDE [Concomitant]
  4. ENALAPRIL MALEATE [Concomitant]
  5. OMEPRAZOLE (OMEPRAZOLE SODIUM) [Concomitant]
  6. CALCIUM [Concomitant]

REACTIONS (2)
  - CEREBRAL ISCHAEMIA [None]
  - LOSS OF CONSCIOUSNESS [None]
